FAERS Safety Report 9699488 (Version 2)
Quarter: 2013Q4

REPORT INFORMATION
  Report Type: Spontaneous
  Country: US (occurrence: US)
  Receive Date: 20131120
  Receipt Date: 20131120
  Transmission Date: 20140711
  Serious: No
  Sender: FDA-Public Use
  Company Number: US-TEVA-361008USA

PATIENT
  Age: 36 Year
  Sex: Female
  Weight: 55.84 kg

DRUGS (1)
  1. PARAGARD 380A [Suspect]
     Indication: CONTRACEPTION
     Dates: start: 20120626, end: 20120928

REACTIONS (1)
  - Device dislocation [Recovered/Resolved]
